FAERS Safety Report 7903474-4 (Version None)
Quarter: 2011Q4

REPORT INFORMATION
  Report Type: 
  Country: None (occurrence: None)
  Receive Date: 20111107
  Receipt Date: 20111028
  Transmission Date: 20120403
  Serious: Yes (Hospitalization)
  Sender: FDA-Public Use
  Company Number: CPI 2770

PATIENT
  Age: 26 Year
  Sex: Female

DRUGS (1)
  1. IBUPROFEN [Suspect]
     Indication: TOOTH EXTRACTION
     Dosage: 800MG PRE-OP    400MG POST-OP

REACTIONS (1)
  - INTESTINAL OBSTRUCTION [None]
